FAERS Safety Report 8524655-5 (Version None)
Quarter: 2012Q3

REPORT INFORMATION
  Report Type: 
  Country: None (occurrence: None)
  Receive Date: 20120720
  Receipt Date: 20120706
  Transmission Date: 20120928
  Serious: Yes (Hospitalization, Other)
  Sender: FDA-Public Use
  Company Number: JP-ROCHE-1070918

PATIENT
  Sex: Female
  Weight: 44 kg

DRUGS (8)
  1. ACTEMRA [Suspect]
     Indication: RHEUMATOID ARTHRITIS
     Route: 041
     Dates: start: 20111208, end: 20120328
  2. METHOTREXATE [Concomitant]
     Indication: RHEUMATOID ARTHRITIS
     Route: 048
     Dates: start: 20090701, end: 20110614
  3. METHOTREXATE [Concomitant]
     Route: 048
     Dates: start: 20110615, end: 20110810
  4. FOLIAMIN [Concomitant]
     Indication: RHEUMATOID ARTHRITIS
     Route: 048
     Dates: start: 20090701, end: 20120328
  5. SODIUM FERROUS CITRATE [Concomitant]
  6. METHOTREXATE [Concomitant]
     Route: 048
     Dates: start: 20110811, end: 20111104
  7. METHOTREXATE [Concomitant]
     Route: 048
     Dates: start: 20111115, end: 20120401
  8. PREDNISOLONE [Concomitant]
     Indication: RHEUMATOID ARTHRITIS
     Route: 048
     Dates: start: 20090901

REACTIONS (8)
  - LUNG DISORDER [None]
  - FEMORAL NECK FRACTURE [None]
  - PNEUMONIA [None]
  - ARTHROPATHY [None]
  - CHOLELITHIASIS [None]
  - BULLOUS IMPETIGO [None]
  - SYSTEMIC LUPUS ERYTHEMATOSUS [None]
  - HEPATIC CYST [None]
